FAERS Safety Report 12984745 (Version 3)
Quarter: 2019Q1

REPORT INFORMATION
  Report Type: Report from Study
  Country: US (occurrence: US)
  Receive Date: 20161129
  Receipt Date: 20190305
  Transmission Date: 20190417
  Serious: Yes (Death, Hospitalization)
  Sender: FDA-Public Use
  Company Number: US-ACTELION-A-NJ2016-146239

PATIENT
  Age: 77 Year
  Sex: Female
  Weight: 135 kg

DRUGS (3)
  1. OPSUMIT [Suspect]
     Active Substance: MACITENTAN
     Indication: PULMONARY ARTERIAL HYPERTENSION
     Dosage: 10 MG, QD
     Route: 048
     Dates: start: 20160531, end: 20190210
  2. DILTIAZEM. [Concomitant]
     Active Substance: DILTIAZEM
  3. ADEMPAS [Concomitant]
     Active Substance: RIOCIGUAT

REACTIONS (7)
  - Pyrexia [Unknown]
  - Renal failure [Fatal]
  - Urinary tract infection [Unknown]
  - Cardiac failure congestive [Fatal]
  - Cystitis [Unknown]
  - Pneumonia [Unknown]
  - Pulmonary arterial hypertension [Fatal]

NARRATIVE: CASE EVENT DATE: 20161117
